FAERS Safety Report 17517249 (Version 2)
Quarter: 2020Q2

REPORT INFORMATION
  Report Type: Report from Study
  Country: CA (occurrence: CA)
  Receive Date: 20200309
  Receipt Date: 20200519
  Transmission Date: 20200713
  Serious: Yes (Other)
  Sender: FDA-Public Use
  Company Number: CA-BEH-2020113924

PATIENT
  Age: 49 Year
  Sex: Female

DRUGS (8)
  1. BERINERT [Suspect]
     Active Substance: HUMAN C1-ESTERASE INHIBITOR
     Indication: PROPHYLAXIS
     Dosage: UNK
     Route: 058
     Dates: start: 202001, end: 202001
  2. BERINERT [Suspect]
     Active Substance: HUMAN C1-ESTERASE INHIBITOR
     Indication: PROPHYLAXIS
     Dosage: UNK
     Route: 058
     Dates: start: 202001, end: 202001
  3. SYNTHROID [Concomitant]
     Active Substance: LEVOTHYROXINE SODIUM
     Indication: BLOOD THYROID STIMULATING HORMONE INCREASED
     Dosage: 75 MICROGRAM, QD
     Route: 048
  4. BERINERT [Suspect]
     Active Substance: HUMAN C1-ESTERASE INHIBITOR
     Dosage: 1500 INTERNATIONAL UNIT, QOD
     Route: 058
     Dates: start: 202005
  5. BERINERT [Suspect]
     Active Substance: HUMAN C1-ESTERASE INHIBITOR
     Indication: HEREDITARY ANGIOEDEMA WITH C1 ESTERASE INHIBITOR DEFICIENCY
     Dosage: 1500 INTERNATIONAL UNIT, BIW
     Route: 058
     Dates: start: 20191007
  6. BERINERT [Suspect]
     Active Substance: HUMAN C1-ESTERASE INHIBITOR
     Indication: HEREDITARY ANGIOEDEMA WITH C1 ESTERASE INHIBITOR DEFICIENCY
     Dosage: 1500 INTERNATIONAL UNIT, BIW
     Route: 058
     Dates: start: 20191007
  7. BERINERT [Suspect]
     Active Substance: HUMAN C1-ESTERASE INHIBITOR
     Dosage: 1500 INTERNATIONAL UNIT, QOD
     Route: 058
     Dates: start: 202005
  8. ESTROGEN [Concomitant]
     Active Substance: ESTROGENS
     Dosage: 2 MILLIGRAM
     Route: 065

REACTIONS (16)
  - Product storage error [Unknown]
  - Product quality issue [Unknown]
  - Injection site pain [Unknown]
  - Hereditary angioedema [Recovered/Resolved]
  - Product preparation issue [Unknown]
  - Incorrect route of product administration [Unknown]
  - Extra dose administered [Unknown]
  - Injection site pain [Recovered/Resolved with Sequelae]
  - Hereditary angioedema [Recovered/Resolved]
  - Hereditary angioedema [Recovered/Resolved]
  - Product use in unapproved indication [Unknown]
  - Hereditary angioedema [Unknown]
  - Device issue [Unknown]
  - No adverse event [Unknown]
  - Drug ineffective [Unknown]
  - Blood thyroid stimulating hormone increased [Unknown]

NARRATIVE: CASE EVENT DATE: 202001
